FAERS Safety Report 4965101-8 (Version None)
Quarter: 2006Q2

REPORT INFORMATION
  Report Type: 
  Country: None (occurrence: None)
  Receive Date: 20060406
  Receipt Date: 20060331
  Transmission Date: 20061013
  Serious: Yes (Other)
  Sender: FDA-Public Use
  Company Number: PHEH2006US04337

PATIENT
  Age: 52 Year
  Sex: Male

DRUGS (2)
  1. TRILEPTAL [Suspect]
     Dates: start: 20060101
  2. CEPHALEXIN [Suspect]

REACTIONS (4)
  - DRUG INTERACTION [None]
  - HEPATOMEGALY [None]
  - ULTRASOUND SCAN ABNORMAL [None]
  - WEIGHT INCREASED [None]
